FAERS Safety Report 12802066 (Version 1)
Quarter: 2016Q4

REPORT INFORMATION
  Report Type: Report from Study
  Country: US (occurrence: US)
  Receive Date: 20161003
  Receipt Date: 20161003
  Transmission Date: 20170207
  Serious: Yes (Other)
  Sender: FDA-Public Use
  Company Number: US-BAYER-2016-125896

PATIENT
  Age: 75 Year
  Sex: Male

DRUGS (6)
  1. NEXAVAR [Suspect]
     Active Substance: SORAFENIB
     Indication: HEPATOCELLULAR CARCINOMA
     Dosage: 400 MG, BID
     Route: 048
     Dates: start: 2016, end: 20160705
  2. TEMOVATE [Concomitant]
     Active Substance: CLOBETASOL PROPIONATE
     Dosage: APPLY 2 TIMES DAILY FOR 30 DAYS IN SMALLEST AMOUNT POSSIBLE TO COVER AFFECTED AREA
     Route: 061
  3. OXYCODONE [Concomitant]
     Active Substance: OXYCODONE
     Indication: PAIN
     Dosage: TAKE 1 TAB EVERY 6 HOURS AS NEEDED
     Route: 048
  4. BACTRIM DS [Concomitant]
     Active Substance: SULFAMETHOXAZOLE\TRIMETHOPRIM
     Dosage: 1 DF, BID FOR 30 DAYS
     Route: 048
  5. NEXAVAR [Suspect]
     Active Substance: SORAFENIB
     Indication: HEPATOCELLULAR CARCINOMA
     Dosage: 400 MG, BID
     Route: 048
     Dates: start: 20160611, end: 20160624
  6. VITAMIN D [Concomitant]
     Active Substance: CHOLECALCIFEROL
     Dosage: UNK
     Route: 048

REACTIONS (14)
  - Blister [None]
  - Bone pain [None]
  - Pain [None]
  - Phantom pain [None]
  - Post procedural complication [Recovering/Resolving]
  - Peripheral coldness [None]
  - Gait disturbance [Recovering/Resolving]
  - Skin ulcer [Recovering/Resolving]
  - Pain in extremity [Recovering/Resolving]
  - Skin exfoliation [None]
  - Fatigue [None]
  - Drug intolerance [None]
  - Rash [Recovering/Resolving]
  - Skin exfoliation [None]

NARRATIVE: CASE EVENT DATE: 2016
